FAERS Safety Report 7892782-1 (Version None)
Quarter: 2011Q4

REPORT INFORMATION
  Report Type: 
  Country: None (occurrence: None)
  Receive Date: 20111104
  Receipt Date: 20111027
  Transmission Date: 20120403
  Serious: Yes (Hospitalization, Other)
  Sender: FDA-Public Use
  Company Number: BR-US-EMD SERONO, INC.-7092654

PATIENT
  Sex: Male

DRUGS (2)
  1. OMEPRAZOLE [Concomitant]
     Indication: GASTRIC DISORDER
     Dates: start: 20110901
  2. REBIF [Suspect]
     Indication: RELAPSING-REMITTING MULTIPLE SCLEROSIS
     Dates: start: 20110705

REACTIONS (3)
  - OROPHARYNGEAL PAIN [None]
  - MULTIPLE SCLEROSIS RELAPSE [None]
  - INFARCTION [None]
